FAERS Safety Report 17089880 (Version 2)
Quarter: 2020Q1

REPORT INFORMATION
  Report Type: Spontaneous
  Country: BR (occurrence: BR)
  Receive Date: 20191128
  Receipt Date: 20200116
  Transmission Date: 20200409
  Serious: Yes (Hospitalization)
  Sender: FDA-Public Use
  Company Number: BR-SA-2019SA266063

PATIENT
  Sex: Male

DRUGS (1)
  1. LANTUS SOLOSTAR [Suspect]
     Active Substance: INSULIN GLARGINE
     Indication: DIABETES MELLITUS
     Dosage: 25 IU
     Route: 058
     Dates: start: 20190910, end: 201911

REACTIONS (4)
  - Product storage error [Unknown]
  - Blood glucose increased [Recovered/Resolved]
  - Peau d^orange [Unknown]
  - Benign prostatic hyperplasia [Unknown]
